FAERS Safety Report 9961248 (Version 1)
Quarter: 2014Q1

REPORT INFORMATION
  Report Type: Spontaneous
  Country: US (occurrence: US)
  Receive Date: 20140305
  Receipt Date: 20140305
  Transmission Date: 20141002
  Serious: No
  Sender: FDA-Public Use
  Company Number: US-BAYER-2014-033812

PATIENT
  Age: 55 Year
  Sex: Male
  Weight: 86 kg

DRUGS (1)
  1. ALEVE TABLET [Suspect]
     Indication: PAIN
     Dosage: UNK UNK, PRN
     Route: 048
     Dates: start: 2004, end: 2010

REACTIONS (1)
  - Drug ineffective [None]
